FAERS Safety Report 7201782-6 (Version None)
Quarter: 2010Q4

REPORT INFORMATION
  Report Type: 
  Country: None (occurrence: None)
  Receive Date: 20101229
  Receipt Date: 20101216
  Transmission Date: 20110411
  Serious: Yes (Hospitalization)
  Sender: FDA-Public Use
  Company Number: US-ELI_LILLY_AND_COMPANY-US201007007095

PATIENT
  Sex: Female

DRUGS (11)
  1. ZYPREXA [Suspect]
     Indication: AGGRESSION
     Dosage: 12.5 MG, DAILY (1/D)
     Dates: start: 20100601
  2. ZYPREXA [Suspect]
     Dosage: 7.5 MG, DAILY (1/D)
  3. ZYPREXA [Suspect]
     Dosage: 5 MG, DAILY (1/D)
  4. ZYPREXA [Suspect]
     Dosage: 2.5 MG, 3/D
     Dates: start: 20100806
  5. ZYPREXA [Suspect]
     Dosage: 5 MG, DAILY (1/D)
  6. ZYPREXA ZYDIS [Suspect]
     Indication: VASCULAR DEMENTIA
     Dosage: 5 MG, UNK
     Route: 048
     Dates: start: 20100101
  7. ZYPREXA ZYDIS [Suspect]
     Dosage: 2.5 MG, 3/D
     Route: 048
  8. FORTEO [Suspect]
     Dosage: 20 UG, DAILY (1/D)
  9. ARICEPT [Concomitant]
  10. NAMENDA [Concomitant]
  11. MULTIVITAMIN [Concomitant]

REACTIONS (12)
  - APHASIA [None]
  - ASTHENIA [None]
  - DRUG INEFFECTIVE [None]
  - FALL [None]
  - FEEDING DISORDER [None]
  - FEELING ABNORMAL [None]
  - HIP FRACTURE [None]
  - MEMORY IMPAIRMENT [None]
  - OFF LABEL USE [None]
  - PSYCHOTIC DISORDER [None]
  - SOMNOLENCE [None]
  - TREMOR [None]
